FAERS Safety Report 10020508 (Version 2)
Quarter: 2014Q2

REPORT INFORMATION
  Report Type: Spontaneous
  Country: US (occurrence: US)
  Receive Date: 20140319
  Receipt Date: 20140522
  Transmission Date: 20141212
  Serious: No
  Sender: FDA-Public Use
  Company Number: US-BIOGENIDEC-2014BI022989

PATIENT
  Age: 66 Year
  Sex: Female

DRUGS (10)
  1. TECFIDERA [Suspect]
     Indication: MULTIPLE SCLEROSIS
     Route: 048
     Dates: start: 20140203
  2. TECFIDERA [Suspect]
     Indication: RELAPSING-REMITTING MULTIPLE SCLEROSIS
     Route: 048
     Dates: start: 20140203
  3. AMPYRA [Concomitant]
     Indication: HYPERTENSION
     Route: 048
  4. CALCIUM CARBONATE [Concomitant]
  5. HYDROCODONE BITARTRATE [Concomitant]
  6. LISINOPRIL [Concomitant]
     Indication: HYPERTENSION
     Route: 048
  7. LOMOTIL [Concomitant]
  8. CALCIUM AND VITAMIN D3 [Concomitant]
     Route: 048
  9. VITAMIN E [Concomitant]
  10. VITAMIN B COMPLEX [Concomitant]
     Indication: MULTIPLE SCLEROSIS
     Route: 048

REACTIONS (13)
  - Abnormal loss of weight [Not Recovered/Not Resolved]
  - Diplopia [Unknown]
  - Gait disturbance [Unknown]
  - Peripheral swelling [Not Recovered/Not Resolved]
  - Self injurious behaviour [Not Recovered/Not Resolved]
  - Renal disorder [Unknown]
  - Cardiac disorder [Unknown]
  - Angina pectoris [Not Recovered/Not Resolved]
  - Blood pressure increased [Not Recovered/Not Resolved]
  - Constipation [Unknown]
  - Diarrhoea [Not Recovered/Not Resolved]
  - Nausea [Not Recovered/Not Resolved]
  - Vomiting [Not Recovered/Not Resolved]
